FAERS Safety Report 13930931 (Version 1)
Quarter: 2017Q3

REPORT INFORMATION
  Report Type: Spontaneous
  Country: JP (occurrence: JP)
  Receive Date: 20170902
  Receipt Date: 20170902
  Transmission Date: 20171127
  Serious: Yes (Other)
  Sender: FDA-Public Use
  Company Number: JP-AMGEN-JPNSP2017131499

PATIENT
  Age: 79 Year
  Sex: Female

DRUGS (2)
  1. DENOTAS [Suspect]
     Active Substance: CALCIUM CARBONATE\CHOLECALCIFEROL\MAGNESIUM CARBONATE
     Indication: PRODUCT USED FOR UNKNOWN INDICATION
     Dosage: TWO TABLETS, QD
     Route: 065
  2. PRALIA [Suspect]
     Active Substance: DENOSUMAB
     Indication: OSTEOPOROSIS
     Dosage: 60 MG, ONCE
     Route: 058
     Dates: start: 201702

REACTIONS (6)
  - Blood zinc decreased [Unknown]
  - Ageusia [Unknown]
  - Abdominal discomfort [Unknown]
  - Chronic myeloid leukaemia [Unknown]
  - Nausea [Unknown]
  - Heat illness [Unknown]

NARRATIVE: CASE EVENT DATE: 2017
